FAERS Safety Report 12579971 (Version 10)
Quarter: 2018Q2

REPORT INFORMATION
  Report Type: Spontaneous
  Country: US (occurrence: US)
  Receive Date: 20160721
  Receipt Date: 20180405
  Transmission Date: 20180711
  Serious: Yes (Other)
  Sender: FDA-Public Use
  Company Number: US-SA-2016SA132693

PATIENT
  Age: 74 Year
  Sex: Female

DRUGS (9)
  1. PRALUENT [Suspect]
     Active Substance: ALIROCUMAB
     Indication: PRODUCT USED FOR UNKNOWN INDICATION
     Route: 058
     Dates: start: 20160912
  2. VITAMIN D [Concomitant]
     Active Substance: CHOLECALCIFEROL
  3. PLAVIX [Suspect]
     Active Substance: CLOPIDOGREL BISULFATE
     Route: 065
  4. IRON [Concomitant]
     Active Substance: IRON
  5. PRALUENT [Suspect]
     Active Substance: ALIROCUMAB
     Indication: PRODUCT USED FOR UNKNOWN INDICATION
     Dosage: EXPIRATION DATE 15-MAY-?STRENGTH 75 MG
     Route: 058
     Dates: start: 20160527
  6. ALIROCUMAB PREFILLED PEN [Suspect]
     Active Substance: ALIROCUMAB
     Indication: PRODUCT USED FOR UNKNOWN INDICATION
     Dates: start: 20160912
  7. HYDROCHLOROTHIAZIDE. [Concomitant]
     Active Substance: HYDROCHLOROTHIAZIDE
  8. ENALAPRIL [Concomitant]
     Active Substance: ENALAPRIL
  9. ALIROCUMAB PREFILLED PEN [Suspect]
     Active Substance: ALIROCUMAB
     Indication: PRODUCT USED FOR UNKNOWN INDICATION
     Dates: start: 20160527

REACTIONS (17)
  - Contusion [Unknown]
  - Back disorder [Unknown]
  - Pain [Unknown]
  - Pain in extremity [Unknown]
  - Arthropathy [Unknown]
  - Rash [Unknown]
  - Procedural pain [Unknown]
  - Bone disorder [Unknown]
  - Increased tendency to bruise [Unknown]
  - Arthropathy [Unknown]
  - Rheumatoid arthritis [Unknown]
  - Tibia fracture [Unknown]
  - Hypoaesthesia [Unknown]
  - Nail disorder [Unknown]
  - Musculoskeletal discomfort [Unknown]
  - Foot fracture [Unknown]
  - Injection site rash [Unknown]

NARRATIVE: CASE EVENT DATE: 2016
